FAERS Safety Report 6022560-X (Version None)
Quarter: 2008Q4

REPORT INFORMATION
  Report Type: 
  Country: None (occurrence: None)
  Receive Date: 20081230
  Receipt Date: 20081222
  Transmission Date: 20090506
  Serious: Yes (Other)
  Sender: FDA-Public Use
  Company Number: PHHY2008BR32788

PATIENT
  Sex: Female
  Weight: 71 kg

DRUGS (3)
  1. GALVUS MET COMBIPACK [Suspect]
     Indication: TYPE 2 DIABETES MELLITUS
     Dosage: 850/50 MG, 1 TABLET OF EACH TREATMENT BID
     Route: 048
  2. EXFORGE [Concomitant]
     Indication: HYPERTENSION
     Dosage: 320/5 MG, 1 TABLET DAILY
     Route: 048
  3. KEFORAL [Concomitant]
     Dosage: UNK

REACTIONS (2)
  - BLOOD GLUCOSE INCREASED [None]
  - LACRIMAL DUCT PROCEDURE [None]
